FAERS Safety Report 14432473 (Version 1)
Quarter: 2018Q1

REPORT INFORMATION
  Report Type: Spontaneous
  Country: FR (occurrence: FR)
  Receive Date: 20180124
  Receipt Date: 20180124
  Transmission Date: 20180509
  Serious: Yes (Death, Life-Threatening)
  Sender: FDA-Public Use
  Company Number: FR-BAYER-2018-009076

PATIENT
  Age: 72 Year
  Sex: Male
  Weight: 93 kg

DRUGS (1)
  1. NEXAVAR [Suspect]
     Active Substance: SORAFENIB
     Indication: HEPATOCELLULAR CARCINOMA
     Dosage: 400 MG, QD
     Route: 048

REACTIONS (8)
  - Acute hepatic failure [Fatal]
  - Prothrombin time ratio decreased [Fatal]
  - Weight decreased [Fatal]
  - Blood creatinine increased [Fatal]
  - Hepatitis acute [Fatal]
  - Decreased appetite [Fatal]
  - Jaundice [Fatal]
  - Palmoplantar keratoderma [Fatal]

NARRATIVE: CASE EVENT DATE: 201708
